FAERS Safety Report 12686170 (Version 1)
Quarter: 2016Q3

REPORT INFORMATION
  Report Type: Spontaneous
  Country: US (occurrence: US)
  Receive Date: 20160825
  Receipt Date: 20160825
  Transmission Date: 20161109
  Serious: No
  Sender: FDA-Public Use
  Company Number: US-PERRIGO-15US011537

PATIENT
  Age: 37 Year
  Sex: Male
  Weight: 81.63 kg

DRUGS (1)
  1. NICOTINE POLACRILEX [Suspect]
     Active Substance: NICOTINE
     Indication: SMOKING CESSATION THERAPY
     Dosage: 2 MG, 6 TIMES DAILY
     Route: 002
     Dates: start: 20151027, end: 20151031

REACTIONS (4)
  - Oral discomfort [Recovering/Resolving]
  - Throat irritation [Recovered/Resolved]
  - Tongue discomfort [Recovering/Resolving]
  - Ageusia [Recovering/Resolving]

NARRATIVE: CASE EVENT DATE: 20151027
